FAERS Safety Report 22355584 (Version 1)
Quarter: 2023Q2

REPORT INFORMATION
  Report Type: Spontaneous
  Country: US (occurrence: US)
  Receive Date: 20230523
  Receipt Date: 20230523
  Transmission Date: 20230722
  Serious: Yes (Hospitalization)
  Sender: FDA-Public Use
  Company Number: US-TEVA-2023-US-2888828

PATIENT
  Age: 33 Year
  Sex: Male

DRUGS (2)
  1. GLYBURIDE [Interacting]
     Active Substance: GLYBURIDE
     Indication: Anxiety
     Dosage: 2 UNMARKED LIGHT BLUE PILLS
     Route: 048
  2. GLYBURIDE [Interacting]
     Active Substance: GLYBURIDE
     Indication: Drug abuse

REACTIONS (6)
  - Hypoglycaemia [Recovered/Resolved]
  - Loss of consciousness [Recovered/Resolved]
  - Hyperhidrosis [Recovered/Resolved]
  - Adulterated product [Unknown]
  - Alcohol interaction [Unknown]
  - Drug abuse [Unknown]
